FAERS Safety Report 10766042 (Version 1)
Quarter: 2015Q1

REPORT INFORMATION
  Report Type: Spontaneous
  Country: BR (occurrence: BR)
  Receive Date: 20150205
  Receipt Date: 20150205
  Transmission Date: 20150721
  Serious: Yes (Other)
  Sender: FDA-Public Use
  Company Number: BR-PFIZER INC-2014348695

PATIENT
  Age: 28 Year
  Sex: Female

DRUGS (1)
  1. DEPO-PROVERA [Suspect]
     Active Substance: MEDROXYPROGESTERONE ACETATE
     Indication: CONTRACEPTION
     Dosage: 150 MG (1 INJECTION), EVERY 3 MONTHS
     Dates: start: 2010

REACTIONS (7)
  - Drug administration error [Unknown]
  - Premature separation of placenta [Unknown]
  - Genital pain [Unknown]
  - Unintended pregnancy [Unknown]
  - Feeling abnormal [Unknown]
  - Pelvic discomfort [Unknown]
  - Abortion spontaneous [Unknown]

NARRATIVE: CASE EVENT DATE: 2010
